FAERS Safety Report 8561855-2 (Version None)
Quarter: 2012Q3

REPORT INFORMATION
  Report Type: 
  Country: None (occurrence: None)
  Receive Date: 20120802
  Receipt Date: 20120703
  Transmission Date: 20120928
  Serious: No
  Sender: FDA-Public Use
  Company Number: US-AMGEN-USASP2012031296

PATIENT
  Age: 72 Year
  Sex: Female

DRUGS (1)
  1. ENBREL [Suspect]
     Indication: RHEUMATOID ARTHRITIS
     Dosage: 50 MG, QWK
     Dates: start: 20120315

REACTIONS (10)
  - PAIN IN EXTREMITY [None]
  - DENTAL OPERATION [None]
  - DRUG INEFFECTIVE [None]
  - ARTHRITIS [None]
  - POST PROCEDURAL INFECTION [None]
  - BLOOD PRESSURE INCREASED [None]
  - HIATUS HERNIA [None]
  - FATIGUE [None]
  - DIARRHOEA [None]
  - ABDOMINAL PAIN UPPER [None]
